FAERS Safety Report 9284563 (Version 1)
Quarter: 2013Q2

REPORT INFORMATION
  Report Type: Spontaneous
  Country: US (occurrence: US)
  Receive Date: 20130511
  Receipt Date: 20130511
  Transmission Date: 20140414
  Serious: No
  Sender: FDA-Public Use
  Company Number: US-009507513-1305USA004862

PATIENT
  Age: 64 Year
  Sex: Female

DRUGS (3)
  1. SINGULAIR [Suspect]
     Indication: SEASONAL ALLERGY
     Dosage: 10 MG, QD
     Route: 048
     Dates: start: 200605, end: 20130417
  2. SINGULAIR [Suspect]
     Indication: ASTHMA
  3. MONTELUKAST [Concomitant]

REACTIONS (5)
  - Rapid eye movements sleep abnormal [Recovered/Resolved]
  - Screaming [Recovered/Resolved]
  - Abnormal dreams [Recovered/Resolved]
  - Hallucination [Unknown]
  - Suicidal ideation [Unknown]
